FAERS Safety Report 4375917-7 (Version None)
Quarter: 2004Q2

REPORT INFORMATION
  Report Type: 
  Country: None (occurrence: None)
  Receive Date: 20040609
  Receipt Date: 20040609
  Transmission Date: 20050107
  Serious: Yes (Hospitalization)
  Sender: FDA-Public Use
  Company Number: None

PATIENT
  Sex: Female

DRUGS (13)
  1. PROCAINAMIDE [Suspect]
     Dosage: 2.5 MG /MIN IV CONT INF
     Route: 042
     Dates: start: 20040229, end: 20040305
  2. LANSOPRAZOLE [Concomitant]
  3. DOCUSATE [Concomitant]
  4. SENNA [Concomitant]
  5. BISACODYL [Concomitant]
  6. ATORVASTATIN CALCIUM [Concomitant]
  7. ENALAPRIL [Concomitant]
  8. HYDROCHLOROTHIAZIDE [Concomitant]
  9. INSULIN [Concomitant]
  10. METOCLOPRAMIDE [Concomitant]
  11. OXYCODONE [Concomitant]
  12. ASPIRIN [Concomitant]
  13. ALBUTEROL [Concomitant]

REACTIONS (4)
  - ATRIAL FLUTTER [None]
  - ATRIAL TACHYCARDIA [None]
  - DRUG LEVEL INCREASED [None]
  - ELECTROCARDIOGRAM QT PROLONGED [None]
